FAERS Safety Report 5706980-6 (Version None)
Quarter: 2008Q2

REPORT INFORMATION
  Report Type: 
  Country: None (occurrence: None)
  Receive Date: 20080416
  Receipt Date: 20080408
  Transmission Date: 20081010
  Serious: Yes (Other)
  Sender: FDA-Public Use
  Company Number: US-NOVOPROD-273850

PATIENT
  Age: 52 Year
  Sex: Female

DRUGS (2)
  1. NORDITROPIN NORDIFLEX [Suspect]
     Indication: FIBROMYALGIA
     Dosage: UNKNOWN
     Route: 058
     Dates: start: 20080331
  2. NORDITROPIN NORDIFLEX [Suspect]
     Indication: FATIGUE

REACTIONS (4)
  - ANXIETY [None]
  - CHEST PAIN [None]
  - DEHYDRATION [None]
  - HEART RATE ABNORMAL [None]
